FAERS Safety Report 7112877-X (Version None)
Quarter: 2010Q4

REPORT INFORMATION
  Report Type: 
  Country: None (occurrence: None)
  Receive Date: 20101119
  Receipt Date: 20100305
  Transmission Date: 20110411
  Serious: No
  Sender: FDA-Public Use
  Company Number: US-BRISTOL-MYERS SQUIBB COMPANY-15005515

PATIENT
  Age: 74 Year
  Sex: Female
  Weight: 66 kg

DRUGS (4)
  1. AVALIDE [Suspect]
     Indication: HYPERTENSION
     Dosage: 1 DOSAGE FORM = 150/12.5MG. STARTED 4 MONTHS AGO.
  2. CALCIUM [Concomitant]
  3. VITAMIN D [Concomitant]
  4. ACTONEL [Concomitant]

REACTIONS (1)
  - ALOPECIA [None]
